FAERS Safety Report 20194548 (Version 2)
Quarter: 2022Q1

REPORT INFORMATION
  Report Type: Spontaneous
  Country: US (occurrence: US)
  Receive Date: 20211216
  Receipt Date: 20220202
  Transmission Date: 20220423
  Serious: Yes (Hospitalization, Other)
  Sender: FDA-Public Use
  Company Number: US-ELI_LILLY_AND_COMPANY-US202112005066

PATIENT
  Age: 62 Year
  Sex: Female

DRUGS (1)
  1. HUMALOG [Suspect]
     Active Substance: INSULIN LISPRO
     Indication: Type 1 diabetes mellitus
     Dosage: 70 U, DAILY
     Route: 058
     Dates: start: 1969

REACTIONS (10)
  - Mobility decreased [Not Recovered/Not Resolved]
  - Lower limb fracture [Recovering/Resolving]
  - Fatigue [Recovering/Resolving]
  - Ankle fracture [Recovering/Resolving]
  - Sinusitis [Not Recovered/Not Resolved]
  - Foot fracture [Recovered/Resolved]
  - Cortisol abnormal [Not Recovered/Not Resolved]
  - Feeling abnormal [Not Recovered/Not Resolved]
  - Frustration tolerance decreased [Not Recovered/Not Resolved]
  - Gait disturbance [Not Recovered/Not Resolved]

NARRATIVE: CASE EVENT DATE: 20211028
